FAERS Safety Report 25022744 (Version 1)
Quarter: 2025Q1

REPORT INFORMATION
  Report Type: Spontaneous
  Country: US (occurrence: None)
  Receive Date: 20250227
  Receipt Date: 20250227
  Transmission Date: 20250409
  Serious: Yes (Hospitalization)
  Sender: FDA-CTU
  Company Number: None

PATIENT
  Sex: Male

DRUGS (6)
  1. TASIGNA [Suspect]
     Active Substance: NILOTINIB
     Indication: Chronic myeloid leukaemia
     Dosage: FREQUENCY : TWICE A DAY;?
     Route: 048
     Dates: start: 20250110
  2. GUAIFENESIN TAB 200MG [Concomitant]
  3. MULTIPLE VIT TAB [Concomitant]
  4. ONDANSETRON TAB SMG ODT [Concomitant]
  5. REPATHA SURE INJ 140MG/ML [Concomitant]
  6. REPATHA SURE INJ 140MG/ML [Concomitant]

REACTIONS (1)
  - Hospitalisation [None]
